FAERS Safety Report 26209024 (Version 1)
Quarter: 2025Q4

REPORT INFORMATION
  Report Type: Spontaneous
  Country: EU (occurrence: EU)
  Receive Date: 20251229
  Receipt Date: 20251229
  Transmission Date: 20260117
  Serious: Yes (Hospitalization)
  Sender: MYLAN
  Company Number: EU-MYLANLABS-2025M1110504

PATIENT
  Age: 23 Year
  Sex: Male

DRUGS (4)
  1. ALPRAZOLAM [Suspect]
     Active Substance: ALPRAZOLAM
     Indication: Product used for unknown indication
     Dosage: UNK
  2. VENLAFAXINE [Suspect]
     Active Substance: VENLAFAXINE HYDROCHLORIDE
     Indication: Product used for unknown indication
     Dosage: UNK
  3. CLONAZEPAM [Suspect]
     Active Substance: CLONAZEPAM
     Indication: Product used for unknown indication
     Dosage: UNK
  4. DIAZEPAM [Suspect]
     Active Substance: DIAZEPAM
     Indication: Product used for unknown indication
     Dosage: UNK

REACTIONS (22)
  - Psychomotor hyperactivity [Recovered/Resolved]
  - Drug withdrawal syndrome [Recovered/Resolved]
  - Nervousness [Recovered/Resolved]
  - Vomiting [Recovered/Resolved]
  - Hyperhidrosis [Recovered/Resolved]
  - Clinomania [Recovered/Resolved]
  - Phonophobia [Recovered/Resolved]
  - Headache [Recovered/Resolved]
  - Hyperaemia [Recovered/Resolved]
  - Sleep disorder [Recovered/Resolved]
  - Muscle spasms [Recovered/Resolved]
  - Sensory disturbance [Recovered/Resolved]
  - Illusion [Recovered/Resolved]
  - Hallucination, visual [Recovered/Resolved]
  - Altered state of consciousness [Recovered/Resolved]
  - Disturbance in attention [Recovered/Resolved]
  - Speech disorder [Recovered/Resolved]
  - Injury [Recovered/Resolved]
  - Flat affect [Recovered/Resolved]
  - Behaviour disorder [Recovered/Resolved]
  - Intentional product misuse [Recovered/Resolved]
  - Aggression [Recovered/Resolved]
